FAERS Safety Report 12953694 (Version 3)
Quarter: 2016Q4

REPORT INFORMATION
  Report Type: Report from Study
  Country: ZW (occurrence: ZW)
  Receive Date: 20161117
  Receipt Date: 20161229
  Transmission Date: 20170207
  Serious: Yes (Hospitalization, Other)
  Sender: FDA-Public Use
  Company Number: ZW-GILEAD-2016-0243462

PATIENT
  Age: 36 Year
  Sex: Male
  Weight: 77.5 kg

DRUGS (5)
  1. VINCRISTINE [Suspect]
     Active Substance: VINCRISTINE
     Indication: KAPOSI^S SARCOMA AIDS RELATED
     Dosage: 2 MG, Q3WK
     Route: 042
     Dates: start: 20160517
  2. PACLITAXEL. [Suspect]
     Active Substance: PACLITAXEL
     Indication: KAPOSI^S SARCOMA AIDS RELATED
     Dosage: UNK, Q3WK
     Route: 042
     Dates: start: 20150930, end: 20160127
  3. BLEOMYCIN [Suspect]
     Active Substance: BLEOMYCIN SULFATE
     Indication: KAPOSI^S SARCOMA AIDS RELATED
     Dosage: 29.4 DF, Q3WK
     Route: 042
     Dates: start: 20160517, end: 20160901
  4. ETOPOSIDE. [Suspect]
     Active Substance: ETOPOSIDE
     Indication: KAPOSI^S SARCOMA AIDS RELATED
     Dosage: UNK, Q3WK
     Route: 048
     Dates: start: 20150423, end: 20150813
  5. EFAVIRENZ/EMTRICITABINE/TENOFOVIR DISOPROXIL FUMARATE [Suspect]
     Active Substance: EFAVIRENZ\EMTRICITABINE\TENOFOVIR DISOPROXIL FUMARATE
     Indication: KAPOSI^S SARCOMA AIDS RELATED
     Dosage: 1 DF, QD
     Route: 048
     Dates: start: 20150423, end: 20161109

REACTIONS (2)
  - Sepsis [Recovering/Resolving]
  - Kaposi^s sarcoma [Recovering/Resolving]

NARRATIVE: CASE EVENT DATE: 20161109
